FAERS Safety Report 14046447 (Version 7)
Quarter: 2020Q1

REPORT INFORMATION
  Report Type: Report from Study
  Country: US (occurrence: US)
  Receive Date: 20171005
  Receipt Date: 20200326
  Transmission Date: 20200409
  Serious: Yes (Life-Threatening, Hospitalization, Other)
  Sender: FDA-Public Use
  Company Number: US-ACTELION-A-US2017-148892

PATIENT
  Age: 69 Year
  Sex: Male
  Weight: 93.42 kg

DRUGS (15)
  1. LISINOPRIL. [Concomitant]
     Active Substance: LISINOPRIL
     Dosage: 40 MG, PRN
     Dates: start: 20120307
  2. FUROSEMIDE. [Concomitant]
     Active Substance: FUROSEMIDE
     Dosage: 20 MG, QD
     Dates: start: 2012
  3. UPTRAVI [Suspect]
     Active Substance: SELEXIPAG
     Dosage: 400 MCG, BID
     Route: 048
     Dates: start: 20161214
  4. PLAVIX [Suspect]
     Active Substance: CLOPIDOGREL BISULFATE
     Indication: PRODUCT USED FOR UNKNOWN INDICATION
     Dosage: 75 MG, QD
     Route: 065
     Dates: start: 2012
  5. TYVASO [Suspect]
     Active Substance: TREPROSTINIL
     Indication: PULMONARY ARTERIAL HYPERTENSION
     Dosage: 18-72 MCG (3-12 BREATHS) QID
     Route: 065
     Dates: start: 20130610
  6. SILDENAFIL. [Concomitant]
     Active Substance: SILDENAFIL
     Dosage: 20 MG, TID
     Dates: start: 2013
  7. UPTRAVI [Suspect]
     Active Substance: SELEXIPAG
     Dosage: 200 MCG, BID
     Route: 048
  8. NORVASC [Concomitant]
     Active Substance: AMLODIPINE BESYLATE
     Dosage: 10 MG, QD
     Dates: start: 2012
  9. SPIRONOLACTONE. [Concomitant]
     Active Substance: SPIRONOLACTONE
     Dosage: 25 MG, QD
     Dates: start: 2015
  10. UPTRAVI [Suspect]
     Active Substance: SELEXIPAG
     Dosage: 1200 MCG, BID
     Route: 048
  11. OPSUMIT [Suspect]
     Active Substance: MACITENTAN
     Indication: PULMONARY ARTERIAL HYPERTENSION
     Dosage: 10 MG, QD
     Route: 048
     Dates: start: 20150814
  12. AMLODIPINE [Concomitant]
     Active Substance: AMLODIPINE BESYLATE
  13. METOPROLOL TARTRATE. [Concomitant]
     Active Substance: METOPROLOL TARTRATE
     Dosage: 100 MG, BID
     Dates: start: 20120427
  14. UPTRAVI [Suspect]
     Active Substance: SELEXIPAG
     Indication: PULMONARY ARTERIAL HYPERTENSION
     Dosage: 800 MCG, QD
     Route: 048
     Dates: start: 20170919
  15. MINOXIDIL. [Concomitant]
     Active Substance: MINOXIDIL
     Dosage: 10 MG, QD
     Dates: start: 20120310

REACTIONS (25)
  - Red blood cell count decreased [Unknown]
  - Dysarthria [Recovered/Resolved with Sequelae]
  - Road traffic accident [Unknown]
  - Craniotomy [Unknown]
  - Hypotension [Recovered/Resolved]
  - Influenza [Recovered/Resolved]
  - Autoimmune disorder [Unknown]
  - Diarrhoea [Unknown]
  - Unevaluable event [Recovered/Resolved]
  - Thinking abnormal [Unknown]
  - Dizziness [Unknown]
  - Fluid overload [Not Recovered/Not Resolved]
  - Subdural haematoma [Recovered/Resolved with Sequelae]
  - Atrial fibrillation [Not Recovered/Not Resolved]
  - Weight increased [Not Recovered/Not Resolved]
  - Hospitalisation [Unknown]
  - Delirium [Recovered/Resolved with Sequelae]
  - Asthenia [Recovered/Resolved]
  - Cough [Recovered/Resolved]
  - Decreased activity [Unknown]
  - Blood pressure systolic decreased [Unknown]
  - Accidental overdose [Recovered/Resolved]
  - Haemoglobin decreased [Unknown]
  - Haematocrit decreased [Unknown]
  - Pyrexia [Recovered/Resolved]

NARRATIVE: CASE EVENT DATE: 20161217
